FAERS Safety Report 5209281-8 (Version None)
Quarter: 2006Q4

REPORT INFORMATION
  Report Type: 
  Country: None (occurrence: None)
  Receive Date: 20061101
  Receipt Date: 20060601
  Transmission Date: 20070319
  Serious: No
  Sender: FDA-Public Use
  Company Number: 2006PV014843

PATIENT
  Age: 64 Year
  Sex: Male
  Weight: 88.4514 kg

DRUGS (5)
  1. SYMLIN [Suspect]
     Indication: DIABETES MELLITUS NON-INSULIN-DEPENDENT
     Dosage: 60 MCG;BID;SC
     Route: 058
     Dates: start: 20060510, end: 20060531
  2. ACTOS [Concomitant]
  3. AMARYL [Concomitant]
  4. PRECOSE [Concomitant]
  5. HUMALOG MIX [Concomitant]

REACTIONS (4)
  - BODY TINEA [None]
  - DIZZINESS [None]
  - UNEVALUABLE EVENT [None]
  - VISUAL ACUITY REDUCED [None]
